FAERS Safety Report 24776602 (Version 1)
Quarter: 2024Q4

REPORT INFORMATION
  Report Type: Spontaneous
  Country: US (occurrence: US)
  Receive Date: 20241226
  Receipt Date: 20241226
  Transmission Date: 20250114
  Serious: No
  Sender: CELLTRION
  Company Number: US-CELLTRION INC.-2024US000560

PATIENT

DRUGS (4)
  1. TRUXIMA [Suspect]
     Active Substance: RITUXIMAB-ABBS
     Indication: Rheumatoid arthritis
     Dosage: TWICE A YEAR
     Route: 042
     Dates: start: 20231020
  2. TRUXIMA [Suspect]
     Active Substance: RITUXIMAB-ABBS
     Dosage: UNK
     Route: 042
     Dates: start: 20231117
  3. CELEBREX [Concomitant]
     Active Substance: CELECOXIB
  4. JUBLIA [Concomitant]
     Active Substance: EFINACONAZOLE

REACTIONS (4)
  - Condition aggravated [Recovered/Resolved]
  - Peripheral coldness [Unknown]
  - Ill-defined disorder [Unknown]
  - Intentional product use issue [Unknown]
